FAERS Safety Report 13134980 (Version 1)
Quarter: 2017Q1

REPORT INFORMATION
  Report Type: Spontaneous
  Country: US (occurrence: US)
  Receive Date: 20170120
  Receipt Date: 20170120
  Transmission Date: 20170428
  Serious: Yes (Other)
  Sender: FDA-Public Use
  Company Number: US-PRAGMA PHARMACEUTICALS, LLC-2017PRG00001

PATIENT
  Age: 65 Year
  Sex: Female
  Weight: 70.3 kg

DRUGS (77)
  1. ENBREL [Suspect]
     Active Substance: ETANERCEPT
  2. AMPICILLIN [Suspect]
     Active Substance: AMPICILLIN
  3. GEODON [Suspect]
     Active Substance: ZIPRASIDONE HYDROCHLORIDE\ZIPRASIDONE MESYLATE
  4. ACTEMRA [Suspect]
     Active Substance: TOCILIZUMAB
  5. COLCHICINE. [Suspect]
     Active Substance: COLCHICINE
  6. DIAMOX SEQUELS [Suspect]
     Active Substance: ACETAZOLAMIDE
  7. LASIX [Suspect]
     Active Substance: FUROSEMIDE
  8. POTASSIUM [Suspect]
     Active Substance: POTASSIUM
  9. SYNTHROID [Concomitant]
     Active Substance: LEVOTHYROXINE SODIUM
  10. FOLIC ACID. [Concomitant]
     Active Substance: FOLIC ACID
  11. VICODIN [Concomitant]
     Active Substance: ACETAMINOPHEN\HYDROCODONE BITARTRATE
  12. TAZACT [Concomitant]
  13. LAMICTAL [Concomitant]
     Active Substance: LAMOTRIGINE
  14. DIAMODE [Concomitant]
  15. HYDROCORTISONE. [Concomitant]
     Active Substance: HYDROCORTISONE
  16. RITUXAN [Suspect]
     Active Substance: RITUXIMAB
  17. DOXYCYCLINE. [Suspect]
     Active Substance: DOXYCYCLINE
  18. METHOTREXATE. [Suspect]
     Active Substance: METHOTREXATE
  19. SULFASALAZINE. [Suspect]
     Active Substance: SULFASALAZINE
  20. CELEXA [Concomitant]
     Active Substance: CITALOPRAM HYDROBROMIDE
  21. VITAMIN D2 [Concomitant]
     Active Substance: ERGOCALCIFEROL
  22. ADVAIR HFA [Concomitant]
     Active Substance: FLUTICASONE PROPIONATE\SALMETEROL XINAFOATE
  23. PREVACID [Concomitant]
     Active Substance: LANSOPRAZOLE
  24. FOSAMAX [Concomitant]
     Active Substance: ALENDRONATE SODIUM
  25. SYSTANE (HYPROMELLOSE 2910 (4000 MPA.S)) [Concomitant]
     Active Substance: HYPROMELLOSE 2910 (4000 MPA.S)
  26. CALCIUM CARBONATE. [Concomitant]
     Active Substance: CALCIUM CARBONATE
  27. ZINC. [Concomitant]
     Active Substance: ZINC
  28. PROTOPIC [Concomitant]
     Active Substance: TACROLIMUS
  29. SIMPONI ARIA [Suspect]
     Active Substance: GOLIMUMAB
  30. ISORDIL [Suspect]
     Active Substance: ISOSORBIDE DINITRATE
  31. COMPAZINE [Suspect]
     Active Substance: PROCHLORPERAZINE MALEATE
  32. ERYTHROMYCIN. [Suspect]
     Active Substance: ERYTHROMYCIN
  33. BACTROBAN [Concomitant]
     Active Substance: MUPIROCIN\MUPIROCIN CALCIUM
  34. ACTIFED [Suspect]
     Active Substance: PSEUDOEPHEDRINE HYDROCHLORIDE\TRIPROLIDINE HYDROCHLORIDE
  35. ARAVA [Suspect]
     Active Substance: LEFLUNOMIDE
  36. DILAUDID [Suspect]
     Active Substance: HYDROMORPHONE HYDROCHLORIDE
  37. DYAZIDE [Suspect]
     Active Substance: HYDROCHLOROTHIAZIDE\TRIAMTERENE
  38. PLAQUENIL [Suspect]
     Active Substance: HYDROXYCHLOROQUINE SULFATE
  39. MULTIVITAMIN INFUSION (MVI) [Concomitant]
  40. NASOCORT [Concomitant]
     Active Substance: BUDESONIDE
  41. REFRESH [Concomitant]
     Active Substance: UNSPECIFIED INGREDIENT
  42. VITAMIN B12 [Concomitant]
     Active Substance: CYANOCOBALAMIN
  43. ZYRTEC [Suspect]
     Active Substance: CETIRIZINE HYDROCHLORIDE
     Dosage: 10 MG, UP TO 1X/DAY
  44. CIPROFLOXACIN. [Suspect]
     Active Substance: CIPROFLOXACIN
  45. CYCLOSPORINE. [Suspect]
     Active Substance: CYCLOSPORINE
  46. HEPATITIS B VACCINE [Suspect]
     Active Substance: HEPATITIS B VIRUS VACCINE
  47. IRON [Suspect]
     Active Substance: IRON
  48. VITAMIN D [Concomitant]
     Active Substance: CHOLECALCIFEROL
  49. MOBIC [Concomitant]
     Active Substance: MELOXICAM
  50. NEXIUM [Concomitant]
     Active Substance: ESOMEPRAZOLE MAGNESIUM
  51. FLU VACCINE VII [Concomitant]
     Active Substance: INFLUENZA VIRUS VACCINE
     Dosage: UNK
     Dates: start: 20140214
  52. NORCO [Concomitant]
     Active Substance: ACETAMINOPHEN\HYDROCODONE BITARTRATE
     Dosage: UNK
     Dates: start: 20161121
  53. RUBRAMIN (CYANOCOBALMIN) [Concomitant]
  54. DELTASONE [Concomitant]
     Active Substance: PREDNISONE
  55. XANAX [Suspect]
     Active Substance: ALPRAZOLAM
     Dosage: 0.5 MG, UP TO 3X/DAY
     Route: 048
  56. LYRICA [Suspect]
     Active Substance: PREGABALIN
     Dosage: 100 MG, 1X/DAY
     Route: 048
  57. TRILEPTAL [Suspect]
     Active Substance: OXCARBAZEPINE
  58. TYLENOL [Concomitant]
     Active Substance: ACETAMINOPHEN
  59. SINGULAIR [Concomitant]
     Active Substance: MONTELUKAST SODIUM
  60. ISOPTO TEARS [Concomitant]
     Active Substance: HYPROMELLOSE 2910 (4000 MPA.S)
  61. PNEUMOCOCCAL VACCINE POLYVALENT NOS [Concomitant]
     Active Substance: PNEUMOCOCCAL VACCINE POLYVALENT
     Dosage: UNK
     Dates: start: 20141114
  62. ZANTAC [Concomitant]
     Active Substance: RANITIDINE HYDROCHLORIDE
  63. ANTIVERT [Suspect]
     Active Substance: MECLIZINE HYDROCHLORIDE
     Indication: DIZZINESS
     Dosage: 12.5 MG, UP TO 3X/DAY
  64. HUMIRA [Suspect]
     Active Substance: ADALIMUMAB
  65. ULTRAM [Suspect]
     Active Substance: TRAMADOL HYDROCHLORIDE
  66. ZENPEP [Suspect]
     Active Substance: PANCRELIPASE AMYLASE\PANCRELIPASE LIPASE\PANCRELIPASE PROTEASE
  67. FLEXERIL [Concomitant]
     Active Substance: CYCLOBENZAPRINE HYDROCHLORIDE
  68. KEFLEX [Suspect]
     Active Substance: CEPHALEXIN
  69. SUDAFED [Suspect]
     Active Substance: PSEUDOEPHEDRINE HYDROCHLORIDE
  70. TAMIFLU [Concomitant]
     Active Substance: OSELTAMIVIR PHOSPHATE
  71. ZOLOFT [Concomitant]
     Active Substance: SERTRALINE HYDROCHLORIDE
  72. RESTASIS [Concomitant]
     Active Substance: CYCLOSPORINE
  73. PHENERGAN [Concomitant]
     Active Substance: PROMETHAZINE HYDROCHLORIDE
  74. ZANAFLEX [Concomitant]
     Active Substance: TIZANIDINE HYDROCHLORIDE
  75. RETIN-A [Concomitant]
     Active Substance: TRETINOIN
  76. VITMAIN D3 (COLECALCIFEROL) [Concomitant]
  77. ZADITOR [Concomitant]
     Active Substance: KETOTIFEN FUMARATE

REACTIONS (56)
  - Sjogren^s syndrome [Unknown]
  - Dyspnoea [Unknown]
  - Oedema [Unknown]
  - Skin warm [Unknown]
  - Eye pruritus [Unknown]
  - Constipation [Unknown]
  - Contusion [Unknown]
  - Dysphoria [Unknown]
  - Vomiting [Unknown]
  - Dry skin [Unknown]
  - Fatigue [Unknown]
  - Diarrhoea [Unknown]
  - Back pain [Unknown]
  - Pruritus [Unknown]
  - Hallucination [Unknown]
  - Dysphagia [Unknown]
  - Arthralgia [Unknown]
  - Dizziness [Unknown]
  - Asthenia [Unknown]
  - Rash [Unknown]
  - Stridor [Unknown]
  - Ear pain [Unknown]
  - Oral pain [Unknown]
  - Photophobia [Unknown]
  - Pain [Unknown]
  - Joint swelling [Unknown]
  - Neck pain [Unknown]
  - Musculoskeletal stiffness [Unknown]
  - Ocular hyperaemia [Unknown]
  - Anaphylactic reaction [Unknown]
  - Rheumatoid arthritis [Unknown]
  - Arthritis infective [Unknown]
  - Erythema [Unknown]
  - Osteoarthritis [Unknown]
  - Chills [Unknown]
  - Rhinorrhoea [Unknown]
  - Myalgia [Unknown]
  - Hypoaesthesia [Unknown]
  - Headache [Unknown]
  - Interstitial lung disease [Unknown]
  - Haemorrhagic diathesis [Unknown]
  - Tenderness [Unknown]
  - Appetite disorder [Unknown]
  - Wheezing [Unknown]
  - Abdominal pain [Unknown]
  - Thinking abnormal [Unknown]
  - Eye pain [Unknown]
  - Drug intolerance [Unknown]
  - Drug hypersensitivity [Unknown]
  - Skin disorder [Unknown]
  - Sneezing [Unknown]
  - Visual impairment [Unknown]
  - Gait disturbance [Unknown]
  - Nausea [Unknown]
  - Blister [Unknown]
  - Tooth disorder [Unknown]

NARRATIVE: CASE EVENT DATE: 20110111
